FAERS Safety Report 4490832-6 (Version None)
Quarter: 2004Q4

REPORT INFORMATION
  Report Type: 
  Country: None (occurrence: None)
  Receive Date: 20041102
  Receipt Date: 20041026
  Transmission Date: 20050328
  Serious: Yes (Hospitalization)
  Sender: FDA-Public Use
  Company Number: PHNU2004DE03664

PATIENT
  Age: 67 Year
  Sex: Female

DRUGS (3)
  1. ESTRADERM [Suspect]
     Indication: HORMONE REPLACEMENT THERAPY
     Route: 062
     Dates: start: 19840101
  2. VENORUTON [Concomitant]
  3. GINKYO [Concomitant]

REACTIONS (4)
  - MALAISE [None]
  - POLYP COLORECTAL [None]
  - POLYPECTOMY [None]
  - SIGMOIDITIS [None]
